FAERS Safety Report 4321238-8 (Version None)
Quarter: 2004Q1

REPORT INFORMATION
  Report Type: 
  Country: None (occurrence: None)
  Receive Date: 20040322
  Receipt Date: 20040322
  Transmission Date: 20041129
  Serious: Yes (Death)
  Sender: FDA-Public Use
  Company Number: None

PATIENT
  Age: 68 Year
  Sex: Female
  Weight: 68.6292 kg

DRUGS (13)
  1. D-THREO-METHYPHENIDUTE HCI - 5MG- CELGENE [Suspect]
     Dosage: 5MG PO BID
     Route: 048
     Dates: start: 20030606, end: 20030608
  2. MARINOL [Concomitant]
  3. COMPROL [Concomitant]
  4. LASIX [Concomitant]
  5. DECADRON [Concomitant]
  6. DURAGESIC [Concomitant]
  7. COUMADIN [Concomitant]
  8. SYNTHROID [Concomitant]
  9. OXYCODONE [Concomitant]
  10. SYNTHROID [Concomitant]
  11. LORAZEPAM [Concomitant]
  12. METOCLOPRAMIDE [Concomitant]
  13. DIFLUCAN [Concomitant]

REACTIONS (10)
  - BACK PAIN [None]
  - DECREASED ACTIVITY [None]
  - DYSARTHRIA [None]
  - FATIGUE [None]
  - HYPERKALAEMIA [None]
  - LETHARGY [None]
  - MARKEDLY REDUCED DIETARY INTAKE [None]
  - PITTING OEDEMA [None]
  - SPEECH DISORDER [None]
  - VISION BLURRED [None]
